FAERS Safety Report 5776746-X (Version None)
Quarter: 2008Q2

REPORT INFORMATION
  Report Type: 
  Country: None (occurrence: None)
  Receive Date: 20080616
  Receipt Date: 20080423
  Transmission Date: 20081010
  Serious: Yes (Death)
  Sender: FDA-Public Use
  Company Number: 2008-00948

PATIENT
  Age: 75 Year
  Sex: Male

DRUGS (1)
  1. VELCADE(BOREZOMIB) INJECTION [Suspect]
     Indication: MULTIPLE MYELOMA
     Dosage: 1 MG/M2, INTRAVENOUS
     Route: 042
     Dates: start: 20080313, end: 20080325

REACTIONS (3)
  - ANXIETY [None]
  - MARASMUS [None]
  - PLATELET COUNT DECREASED [None]
